FAERS Safety Report 6436028-X (Version None)
Quarter: 2009Q4

REPORT INFORMATION
  Report Type: 
  Country: None (occurrence: None)
  Receive Date: 20091110
  Receipt Date: 20091110
  Transmission Date: 20100525
  Serious: Yes (Other)
  Sender: FDA-Public Use
  Company Number: None

PATIENT
  Sex: Female
  Weight: 52.4 kg

DRUGS (1)
  1. PACLITAXEL [Suspect]
     Dosage: 300MG IV
     Route: 042
     Dates: start: 20091109, end: 20091109

REACTIONS (5)
  - FLUSHING [None]
  - GAZE PALSY [None]
  - STRESS [None]
  - TACHYPNOEA [None]
  - UNRESPONSIVE TO STIMULI [None]
